FAERS Safety Report 10170712 (Version 2)
Quarter: 2014Q2

REPORT INFORMATION
  Report Type: Spontaneous
  Country: DE (occurrence: DE)
  Receive Date: 20140514
  Receipt Date: 20140611
  Transmission Date: 20141212
  Serious: Yes (Other)
  Sender: FDA-Public Use
  Company Number: DE-BIOGENIDEC-2014BI044744

PATIENT
  Age: 47 Year
  Sex: Female

DRUGS (2)
  1. TYSABRI [Suspect]
     Indication: MULTIPLE SCLEROSIS
     Route: 042
     Dates: start: 200703
  2. KLIMADYNON (CIMICIFUGA RACEMOSA) [Concomitant]

REACTIONS (4)
  - Alopecia areata [Recovered/Resolved]
  - Depression [Unknown]
  - Neuralgia [Unknown]
  - Fatigue [Unknown]
